FAERS Safety Report 10487314 (Version 2)
Quarter: 2014Q4

REPORT INFORMATION
  Report Type: Spontaneous
  Country: RU (occurrence: RU)
  Receive Date: 20141001
  Receipt Date: 20141202
  Transmission Date: 20150528
  Serious: Yes (Other)
  Sender: FDA-Public Use
  Company Number: RU-BAYER-2014-143937

PATIENT
  Age: 27 Year
  Sex: Female
  Weight: 60 kg

DRUGS (5)
  1. YAZ PLUS [Suspect]
     Active Substance: DROSPIRENONE\ETHINYL ESTRADIOL
     Indication: OVULATION PAIN
  2. MULTIVITAMINS [Concomitant]
     Active Substance: VITAMINS
  3. YAZ PLUS [Suspect]
     Active Substance: DROSPIRENONE\ETHINYL ESTRADIOL
     Indication: CYST
     Dosage: UNK
     Route: 048
     Dates: start: 201404, end: 201409
  4. YARINA PLUS [Suspect]
     Active Substance: DROSPIRENONE\ETHINYL ESTRADIOL\LEVOMEFOLATE CALCIUM
     Dosage: UNK
     Route: 048
     Dates: start: 201410
  5. YAZ PLUS [Suspect]
     Active Substance: DROSPIRENONE\ETHINYL ESTRADIOL
     Indication: UTERINE LEIOMYOMA

REACTIONS (6)
  - Abdominal pain lower [None]
  - Varicose vein [None]
  - Off label use [None]
  - Seizure [None]
  - Nasopharyngitis [Recovered/Resolved]
  - Dyspepsia [None]

NARRATIVE: CASE EVENT DATE: 201407
